FAERS Safety Report 16824489 (Version 2)
Quarter: 2019Q4

REPORT INFORMATION
  Report Type: Report from Study
  Country: BR (occurrence: BR)
  Receive Date: 20190918
  Receipt Date: 20191024
  Transmission Date: 20200122
  Serious: Yes (Other)
  Sender: FDA-Public Use
  Company Number: PHHY2019BR214956

PATIENT
  Age: 67 Year
  Sex: Female
  Weight: 90 kg

DRUGS (6)
  1. FRISIUM [Concomitant]
     Active Substance: CLOBAZAM
     Dosage: 15 MG, QD (5 MONTHS AGO)
     Route: 048
  2. SIMVASTATIN. [Suspect]
     Active Substance: SIMVASTATIN
     Indication: BLOOD CHOLESTEROL INCREASED
     Dosage: 1 DF, QD (8 OR 10 YEARS AGO)
     Route: 048
  3. LEVOTHYROXINE. [Suspect]
     Active Substance: LEVOTHYROXINE
     Indication: THYROID DISORDER
     Dosage: 1 DF, QD (8 OR 10 YEARS AGO)
     Route: 048
  4. FRISIUM [Concomitant]
     Active Substance: CLOBAZAM
     Indication: PETIT MAL EPILEPSY
     Dosage: 10 MG, QD (15 OR 20 YEARS AGO)
     Route: 048
  5. TEGRETOL XR [Suspect]
     Active Substance: CARBAMAZEPINE
     Indication: PETIT MAL EPILEPSY
     Dosage: 1 DF, TID (MORE LESS 15 OR 30 YEARS AGO)
     Route: 048
  6. FRISIUM [Concomitant]
     Active Substance: CLOBAZAM
     Dosage: 20 MG, QD (END OF 2018 OR BEGINING OF 2019)
     Route: 048

REACTIONS (11)
  - Arthralgia [Not Recovered/Not Resolved]
  - Thermal burn [Recovered/Resolved]
  - Blood cholesterol increased [Recovered/Resolved]
  - Sneezing [Recovering/Resolving]
  - Osteoarthritis [Recovering/Resolving]
  - Thyroid disorder [Recovered/Resolved]
  - Petit mal epilepsy [Recovered/Resolved]
  - Allergy to chemicals [Recovering/Resolving]
  - Throat irritation [Recovering/Resolving]
  - Head discomfort [Recovered/Resolved]
  - Insomnia [Recovering/Resolving]

NARRATIVE: CASE EVENT DATE: 201904
